FAERS Safety Report 12465128 (Version 2)
Quarter: 2016Q2

REPORT INFORMATION
  Report Type: Spontaneous
  Country: JP (occurrence: JP)
  Receive Date: 20160614
  Receipt Date: 20160615
  Transmission Date: 20160815
  Serious: Yes (Hospitalization, Other)
  Sender: FDA-Public Use
  Company Number: PHJP2016JP001457

PATIENT
  Age: 17 Year
  Sex: Male

DRUGS (8)
  1. SANDIMMUN INFUSION [Suspect]
     Active Substance: CYCLOSPORINE
     Indication: STEM CELL TRANSPLANT
  2. GANCICLOVIR. [Suspect]
     Active Substance: GANCICLOVIR
     Dosage: UNK, QW (TOTAL DOSE OF SEVEN)
     Route: 031
  3. SANDIMMUN INFUSION [Suspect]
     Active Substance: CYCLOSPORINE
     Indication: PROPHYLAXIS AGAINST GRAFT VERSUS HOST DISEASE
  4. FAMCICLOVIR. [Suspect]
     Active Substance: FAMCICLOVIR
     Indication: CYTOMEGALOVIRUS CHORIORETINITIS
     Dosage: 60 MG, UNK
     Route: 042
  5. GANCICLOVIR. [Suspect]
     Active Substance: GANCICLOVIR
     Dosage: 5 MG, UNK
     Route: 042
  6. METOTREXATE [Suspect]
     Active Substance: METHOTREXATE SODIUM
     Indication: BONE MARROW TRANSPLANT
     Dosage: 10 MG, UNK
     Route: 042
  7. SANDIMMUN INFUSION [Suspect]
     Active Substance: CYCLOSPORINE
     Indication: BONE MARROW TRANSPLANT
     Dosage: 3 MG, UNK
     Route: 041
  8. GANCICLOVIR. [Suspect]
     Active Substance: GANCICLOVIR
     Indication: CYTOMEGALOVIRUS CHORIORETINITIS
     Dosage: 1 MG, UNK
     Route: 042

REACTIONS (8)
  - Cytomegalovirus chorioretinitis [Recovered/Resolved]
  - Visual impairment [Unknown]
  - Acute graft versus host disease [Recovered/Resolved]
  - Retinal haemorrhage [Recovered/Resolved]
  - Drug ineffective [Unknown]
  - Retinal degeneration [Unknown]
  - Retinal detachment [Unknown]
  - Renal impairment [Recovered/Resolved]
